FAERS Safety Report 8090934-1 (Version None)
Quarter: 2012Q1

REPORT INFORMATION
  Report Type: 
  Country: None (occurrence: None)
  Receive Date: 20120128
  Receipt Date: 20110728
  Transmission Date: 20120608
  Serious: No
  Sender: FDA-Public Use
  Company Number: US-ABBOTT-11P-163-0842746-00

PATIENT
  Age: 67 Year
  Sex: Female

DRUGS (5)
  1. ZOCOR [Concomitant]
     Indication: BLOOD CHOLESTEROL INCREASED
     Dosage: DAILY
  2. HUMIRA [Suspect]
     Indication: PSORIASIS
     Dates: start: 20100801
  3. ATENOLOL [Concomitant]
     Indication: BLOOD PRESSURE
     Dosage: DAILY
  4. PRINIVIL [Concomitant]
     Indication: BLOOD PRESSURE
     Dosage: DAILY
  5. FOSAMAX [Concomitant]
     Indication: VITAMIN SUPPLEMENTATION
     Dosage: WEEKLY

REACTIONS (3)
  - ARTHRALGIA [None]
  - SINUSITIS [None]
  - NASOPHARYNGITIS [None]
